FAERS Safety Report 5660514-3 (Version None)
Quarter: 2008Q1

REPORT INFORMATION
  Report Type: 
  Country: None (occurrence: None)
  Receive Date: 20080311
  Receipt Date: 20071101
  Transmission Date: 20080703
  Serious: No
  Sender: FDA-Public Use
  Company Number: US-BAYER-200713599BCC

PATIENT
  Age: 56 Year
  Sex: Female
  Weight: 108 kg

DRUGS (11)
  1. ALEVE [Suspect]
     Indication: NEURALGIA
     Dosage: TOTAL DAILY DOSE: 220 MG  UNIT DOSE: 220 MG
     Route: 048
     Dates: start: 20060505
  2. DARVOCET [Concomitant]
  3. VICOPROFEN [Concomitant]
  4. INDERAL LA [Concomitant]
  5. VASOTEC [Concomitant]
  6. LASIX [Concomitant]
  7. PAXIL [Concomitant]
  8. LIPITOR [Concomitant]
  9. ZETIA [Concomitant]
  10. AMARYL [Concomitant]
  11. ACTOS [Concomitant]

REACTIONS (1)
  - NERVE COMPRESSION [None]
